FAERS Safety Report 9315635 (Version 1)
Quarter: 2013Q2

REPORT INFORMATION
  Report Type: Spontaneous
  Country: TR (occurrence: TR)
  Receive Date: 20130529
  Receipt Date: 20130529
  Transmission Date: 20140414
  Serious: Yes (Hospitalization, Other)
  Sender: FDA-Public Use
  Company Number: TR-ACTAVIS-2013-09151

PATIENT
  Age: 70 Year
  Sex: Male

DRUGS (1)
  1. SILDENAFIL (WATSON LABORATORIES) [Suspect]
     Indication: PRODUCT USED FOR UNKNOWN INDICATION
     Dosage: UNK, BLISTER
     Route: 065

REACTIONS (1)
  - Haemoptysis [Recovered/Resolved]
